FAERS Safety Report 14413974 (Version 1)
Quarter: 2018Q1

REPORT INFORMATION
  Report Type: Spontaneous
  Country: US (occurrence: US)
  Receive Date: 20180118
  Receipt Date: 20180118
  Transmission Date: 20180509
  Serious: No
  Sender: FDA-Public Use
  Company Number: None

PATIENT
  Age: 59 Year
  Sex: Female

DRUGS (1)
  1. SIMPONI ARIA [Suspect]
     Active Substance: GOLIMUMAB
     Indication: RHEUMATOID ARTHRITIS
     Dosage: 130MG Q8W IV
     Route: 042
     Dates: start: 20171220, end: 20171223

REACTIONS (4)
  - Fatigue [None]
  - Migraine [None]
  - Abdominal discomfort [None]
  - Feeling cold [None]

NARRATIVE: CASE EVENT DATE: 20171223
